FAERS Safety Report 8572180-8 (Version None)
Quarter: 2012Q3

REPORT INFORMATION
  Report Type: 
  Country: None (occurrence: None)
  Receive Date: 20120806
  Receipt Date: 20120727
  Transmission Date: 20120928
  Serious: Yes (Other)
  Sender: FDA-Public Use
  Company Number: US-US-EMD SERONO, INC.-7151302

PATIENT
  Sex: Female

DRUGS (3)
  1. REBIF [Suspect]
     Indication: RELAPSING-REMITTING MULTIPLE SCLEROSIS
     Route: 058
     Dates: start: 20071101
  2. CYMBALTA [Concomitant]
     Indication: DEPRESSION
  3. LYRICA [Concomitant]
     Indication: NEURALGIA

REACTIONS (1)
  - BREAST CANCER [None]
